FAERS Safety Report 4444961-3 (Version None)
Quarter: 2004Q3

REPORT INFORMATION
  Report Type: 
  Country: None (occurrence: None)
  Receive Date: 20040909
  Receipt Date: 20040831
  Transmission Date: 20050211
  Serious: Yes (Hospitalization)
  Sender: FDA-Public Use
  Company Number: US-ROCHE-379418

PATIENT
  Age: 66 Year
  Sex: Female
  Weight: 90.7 kg

DRUGS (5)
  1. CELLCEPT [Suspect]
     Indication: RENAL TRANSPLANT
     Route: 048
     Dates: start: 20000831
  2. PREDNISONE [Concomitant]
     Indication: RENAL TRANSPLANT
     Route: 048
     Dates: start: 19970615
  3. PAXIL [Concomitant]
     Indication: DEPRESSION
     Route: 048
  4. ATENOLOL [Concomitant]
     Indication: HYPERTENSION
     Route: 048
  5. ALLOPURINOL [Concomitant]
     Indication: GOUT
     Route: 048

REACTIONS (2)
  - CRYPTOGENIC ORGANIZING PNEUMONIA [None]
  - CYTOMEGALOVIRUS INFECTION [None]
